FAERS Safety Report 12278669 (Version 1)
Quarter: 2016Q2

REPORT INFORMATION
  Report Type: Spontaneous
  Country: NL (occurrence: NL)
  Receive Date: 20160418
  Receipt Date: 20160418
  Transmission Date: 20160815
  Serious: Yes (Congenital Anomaly)
  Sender: FDA-Public Use
  Company Number: NL-009507513-1604NLD009401

PATIENT
  Age: 0 Day
  Sex: Female

DRUGS (6)
  1. MIRTAZAPINE. [Suspect]
     Active Substance: MIRTAZAPINE
     Indication: DEPRESSION
     Dosage: EXTRA INFORMATION: UNKNOWN
     Route: 064
     Dates: start: 20150720
  2. QUETIAPINE FUMARATE. [Concomitant]
     Active Substance: QUETIAPINE FUMARATE
     Route: 064
     Dates: start: 20151217
  3. IRON (UNSPECIFIED) [Concomitant]
     Active Substance: IRON
     Route: 064
  4. [COMPOSITION UNSPECIFIED] [Concomitant]
     Active Substance: UNSPECIFIED INGREDIENT
     Route: 064
  5. VENLAFAXINE HYDROCHLORIDE. [Suspect]
     Active Substance: VENLAFAXINE HYDROCHLORIDE
     Indication: DEPRESSION
     Dosage: ONCE DAILY 1 PIECE, EXTRA INFORMATION: ONCE DAILY 75 MG UNTIL 17DEC2015. NEXT ONCE DAILY 112.5 MG
     Route: 064
     Dates: start: 20151028
  6. ANTIMICROBIAL (UNSPECIFIED) [Concomitant]
     Active Substance: UNSPECIFIED INGREDIENT
     Route: 064

REACTIONS (1)
  - Deafness congenital [Not Recovered/Not Resolved]

NARRATIVE: CASE EVENT DATE: 20160212
